FAERS Safety Report 25955906 (Version 1)
Quarter: 2025Q4

REPORT INFORMATION
  Report Type: Spontaneous
  Country: JP (occurrence: JP)
  Receive Date: 20251024
  Receipt Date: 20251024
  Transmission Date: 20260117
  Serious: Yes (Hospitalization, Other)
  Sender: Sinotherapeutics Inc.
  Company Number: JP-SNT-000434

PATIENT
  Age: 42 Year
  Sex: Male

DRUGS (5)
  1. MESALAMINE [Suspect]
     Active Substance: MESALAMINE
     Indication: Gastritis
     Dosage: ORALLY CRUSHED MESALAZINE
     Route: 048
  2. BUDESONIDE [Concomitant]
     Active Substance: BUDESONIDE
     Indication: Pouchitis
     Route: 065
  3. PREDNISOLONE [Concomitant]
     Active Substance: PREDNISOLONE
     Indication: Gastritis
     Route: 042
  4. MESALAMINE [Suspect]
     Active Substance: MESALAMINE
     Indication: Colitis ulcerative
     Dosage: ORALLY CRUSHED MESALAZINE
     Route: 048
  5. PREDNISOLONE [Concomitant]
     Active Substance: PREDNISOLONE
     Indication: Colitis ulcerative
     Route: 042

REACTIONS (4)
  - Pancreatitis [Unknown]
  - Drug ineffective [Unknown]
  - Colitis ulcerative [Recovered/Resolved]
  - Wrong technique in product usage process [Unknown]
